FAERS Safety Report 21595614 (Version 1)
Quarter: 2022Q4

REPORT INFORMATION
  Report Type: Spontaneous
  Country: JP (occurrence: JP)
  Receive Date: 20221115
  Receipt Date: 20221115
  Transmission Date: 20230112
  Serious: Yes (Other)
  Sender: FDA-Public Use
  Company Number: JP-MLMSERVICE-20221028-3200648-2

PATIENT
  Age: 85 Year
  Sex: Male
  Weight: 62 kg

DRUGS (3)
  1. ETOPOSIDE [Suspect]
     Active Substance: ETOPOSIDE
     Indication: Retroperitoneal cancer
     Dosage: ETOPOSIDE AT 80 MG/M2 (75% DOSE) DAYS 1 TO 3.
     Dates: start: 2020
  2. CARBOPLATIN [Suspect]
     Active Substance: CARBOPLATIN
     Indication: Retroperitoneal cancer
     Dosage: AUC OF 5 ON DAY 1, CUMULATIVE DOSE: 4 CYCLICAL
     Dates: start: 2020
  3. PEGFILGRASTIM [Concomitant]
     Active Substance: PEGFILGRASTIM
     Indication: Prophylaxis
     Dosage: (CONTINUOUS G-CSF) WAS ADMINISTERED ON DAY 4.
     Dates: start: 2020

REACTIONS (1)
  - Renal impairment [Unknown]

NARRATIVE: CASE EVENT DATE: 20200101
